FAERS Safety Report 7717511-3 (Version None)
Quarter: 2011Q3

REPORT INFORMATION
  Report Type: 
  Country: None (occurrence: None)
  Receive Date: 20110830
  Receipt Date: 20110817
  Transmission Date: 20111222
  Serious: Yes (Hospitalization)
  Sender: FDA-Public Use
  Company Number: IE-ELI_LILLY_AND_COMPANY-IE201108005677

PATIENT
  Sex: Female

DRUGS (8)
  1. FORTEO [Suspect]
     Indication: OSTEOPOROSIS
     Dosage: 20 UG, UNK
     Dates: end: 20110801
  2. FORTEO [Suspect]
     Dosage: 20 UG, UNK
     Dates: start: 20110801
  3. CALCICHEW [Concomitant]
  4. CARDICOR [Concomitant]
  5. PREDNISOLONE [Concomitant]
  6. ANXICALM [Concomitant]
  7. LOVAZA [Concomitant]
  8. ARIMIDEX [Concomitant]

REACTIONS (2)
  - WRIST FRACTURE [None]
  - FALL [None]
